FAERS Safety Report 19989400 (Version 4)
Quarter: 2021Q4

REPORT INFORMATION
  Report Type: Spontaneous
  Country: US (occurrence: US)
  Receive Date: 20211025
  Receipt Date: 20211207
  Transmission Date: 20220303
  Serious: Yes (Other)
  Sender: FDA-Public Use
  Company Number: US-CELLTRION INC.-2021US014173

PATIENT

DRUGS (2)
  1. INFLECTRA [Suspect]
     Active Substance: INFLIXIMAB-DYYB
     Indication: Crohn^s disease
     Dosage: 100MG INFUSED OVER 2-4 HOURS EVERY 6-8 WEEKS
     Route: 065
     Dates: start: 202106
  2. TORADOL [Suspect]
     Active Substance: KETOROLAC TROMETHAMINE
     Indication: Product used for unknown indication
     Dosage: 30MG INJECTED INTO MUSCLE
     Route: 030
     Dates: start: 202106

REACTIONS (4)
  - Illness [Unknown]
  - Myalgia [Unknown]
  - Injection [Unknown]
  - Underdose [Unknown]

NARRATIVE: CASE EVENT DATE: 20210601
